FAERS Safety Report 8611758-X (Version None)
Quarter: 2012Q3

REPORT INFORMATION
  Report Type: 
  Country: None (occurrence: None)
  Receive Date: 20120822
  Receipt Date: 20120808
  Transmission Date: 20120928
  Serious: Yes (Other)
  Sender: FDA-Public Use
  Company Number: NZ-ROCHE-1098635

PATIENT
  Age: 39 Year
  Sex: Male
  Weight: 60 kg

DRUGS (6)
  1. VITAMIN B COMPLEX CAP [Concomitant]
  2. TACROLIMUS [Concomitant]
     Indication: IMMUNOSUPPRESSION
     Route: 048
  3. NITROGLYCERIN [Concomitant]
     Indication: ANGINA PECTORIS
     Route: 060
  4. FISH OIL [Concomitant]
  5. MYCOPHENOLATE MOFETIL (CELLCEPT) [Suspect]
     Indication: PROPHYLAXIS AGAINST TRANSPLANT REJECTION
     Route: 048
     Dates: start: 20031101
  6. L-PHENYLALANINE [Concomitant]

REACTIONS (8)
  - LIBIDO INCREASED [None]
  - AGGRESSION [None]
  - PARTNER STRESS [None]
  - MOOD SWINGS [None]
  - ANGINA PECTORIS [None]
  - SUICIDAL IDEATION [None]
  - MANIA [None]
  - ANDROPAUSE [None]
